FAERS Safety Report 4855177-0 (Version None)
Quarter: 2005Q4

REPORT INFORMATION
  Report Type: 
  Country: None (occurrence: None)
  Receive Date: 20051214
  Receipt Date: 20051130
  Transmission Date: 20060501
  Serious: Yes (Death)
  Sender: FDA-Public Use
  Company Number: 2005-US-01346

PATIENT
  Age: 72 Year
  Sex: Female

DRUGS (1)
  1. CLOZAPINE [Suspect]
     Dosage: 75 MG, QD, ORAL
     Route: 048
     Dates: start: 20020201, end: 20051001

REACTIONS (1)
  - PNEUMONIA [None]
